APPROVED DRUG PRODUCT: NITAZOXANIDE
Active Ingredient: NITAZOXANIDE
Strength: 500MG
Dosage Form/Route: TABLET;ORAL
Application: A218701 | Product #001 | TE Code: AB
Applicant: ANNORA PHARMA PRIVATE LTD
Approved: Apr 15, 2025 | RLD: No | RS: No | Type: RX